FAERS Safety Report 23835554 (Version 1)
Quarter: 2024Q2

REPORT INFORMATION
  Report Type: Spontaneous
  Country: US (occurrence: US)
  Receive Date: 20240509
  Receipt Date: 20240509
  Transmission Date: 20240716
  Serious: Yes (Other)
  Sender: FDA-Public Use
  Company Number: US-Harrow Eye-2156724

PATIENT
  Age: 75 Year
  Sex: Female

DRUGS (4)
  1. VERKAZIA [Suspect]
     Active Substance: CYCLOSPORINE
     Indication: Dry eye
     Route: 061
  2. LOTEPREDNOL [Suspect]
     Active Substance: LOTEPREDNOL
     Route: 061
  3. LATANOPROST [Concomitant]
     Active Substance: LATANOPROST
  4. COVID-19 VACCINE NOS [Suspect]
     Active Substance: COVID-19 VACCINE NOS

REACTIONS (1)
  - Kaposi^s sarcoma classical type [Recovering/Resolving]
